FAERS Safety Report 5789406-6 (Version None)
Quarter: 2008Q2

REPORT INFORMATION
  Report Type: 
  Country: None (occurrence: None)
  Receive Date: 20080626
  Receipt Date: 20080619
  Transmission Date: 20081010
  Serious: Yes (Hospitalization)
  Sender: FDA-Public Use
  Company Number: ES-AVENTIS-200813067EU

PATIENT
  Age: 76 Year
  Sex: Male

DRUGS (6)
  1. SEGURIL                            /00032601/ [Suspect]
     Route: 048
  2. DIGOXIN [Suspect]
     Route: 048
     Dates: end: 20080303
  3. ALDACTONE [Suspect]
     Route: 048
  4. OMEPRAZOLE [Concomitant]
     Indication: GASTRITIS PROPHYLAXIS
     Route: 048
     Dates: start: 20080303
  5. CLEXANE [Concomitant]
     Indication: THROMBOSIS PROPHYLAXIS
     Route: 058
  6. HYDRAPRES [Concomitant]
     Route: 048
     Dates: start: 20080303

REACTIONS (2)
  - DRUG INTERACTION [None]
  - THERAPEUTIC AGENT TOXICITY [None]
